FAERS Safety Report 15264956 (Version 1)
Quarter: 2018Q3

REPORT INFORMATION
  Report Type: Spontaneous
  Country: US (occurrence: US)
  Receive Date: 20180723
  Receipt Date: 20180723
  Transmission Date: 20181010
  Serious: Yes (Life-Threatening, Other)
  Sender: FDA-Public Use
  Company Number: None

PATIENT
  Age: 35 Year
  Sex: Male
  Weight: 90 kg

DRUGS (1)
  1. DEPAKOTE [Suspect]
     Active Substance: DIVALPROEX SODIUM
     Indication: INTERMITTENT EXPLOSIVE DISORDER
     Dates: start: 20171025, end: 20180720

REACTIONS (5)
  - Tonsillar disorder [None]
  - Oedema peripheral [None]
  - Lethargy [None]
  - Face oedema [None]
  - Confusional state [None]

NARRATIVE: CASE EVENT DATE: 20180723
